FAERS Safety Report 17374056 (Version 1)
Quarter: 2020Q1

REPORT INFORMATION
  Report Type: Spontaneous
  Country: US (occurrence: US)
  Receive Date: 20200206
  Receipt Date: 20200206
  Transmission Date: 20200409
  Serious: No
  Sender: FDA-Public Use
  Company Number: US-JNJFOC-20200120867

PATIENT
  Sex: Female
  Weight: 61.29 kg

DRUGS (1)
  1. SUDAFED 24 HOUR [Suspect]
     Active Substance: PSEUDOEPHEDRINE HYDROCHLORIDE
     Indication: RESPIRATORY TRACT INFECTION
     Route: 048

REACTIONS (2)
  - Neuralgia [Not Recovered/Not Resolved]
  - Pain [Recovered/Resolved]
